FAERS Safety Report 10233627 (Version 4)
Quarter: 2015Q1

REPORT INFORMATION
  Report Type: Spontaneous
  Country: US (occurrence: US)
  Receive Date: 20140612
  Receipt Date: 20150120
  Transmission Date: 20150720
  Serious: Yes (Life-Threatening, Hospitalization)
  Sender: FDA-Public Use
  Company Number: US-BAYER-2014-087137

PATIENT
  Age: 28 Year
  Sex: Female
  Weight: 66.67 kg

DRUGS (5)
  1. MIRENA [Suspect]
     Active Substance: LEVONORGESTREL
     Indication: CONTRACEPTION
     Dosage: 20 MCG/24HR, CONT
     Route: 015
     Dates: start: 20110812, end: 20130103
  2. PHENERGAN [Concomitant]
     Active Substance: PROMETHAZINE HYDROCHLORIDE
     Indication: NAUSEA
     Dosage: 25 MG, PRN EVERY 6 HOURS
     Dates: start: 20120221
  3. PHENTERMINE [Concomitant]
     Active Substance: PHENTERMINE
     Dosage: 37.5 MG, UNK
     Dates: start: 20120221
  4. PEPTO-BISMOL [Concomitant]
     Active Substance: BISMUTH SUBSALICYLATE\CALCIUM CARBONATE
     Dosage: UNK
     Dates: start: 20120221
  5. XANAX [Concomitant]
     Active Substance: ALPRAZOLAM
     Indication: DEPRESSION

REACTIONS (11)
  - Anxiety [None]
  - Stress [None]
  - Pregnancy with contraceptive device [None]
  - Anhedonia [None]
  - Pain [None]
  - Infection [None]
  - Uterine perforation [None]
  - Abdominal pain [None]
  - General physical health deterioration [None]
  - Injury [None]
  - Drug ineffective [None]

NARRATIVE: CASE EVENT DATE: 201202
